FAERS Safety Report 4767851-5 (Version None)
Quarter: 2005Q3

REPORT INFORMATION
  Report Type: 
  Country: None (occurrence: None)
  Receive Date: 20050913
  Receipt Date: 20050831
  Transmission Date: 20060218
  Serious: Yes (Other)
  Sender: FDA-Public Use
  Company Number: 2005124920

PATIENT
  Sex: Female
  Weight: 58.9676 kg

DRUGS (3)
  1. SUDAFED 12 HOUR [Suspect]
     Dosage: ORAL
     Route: 048
  2. ZOLOFT [Suspect]
     Indication: SOCIAL PHOBIA
     Dosage: 12.5 - 50 MG DAILY, ORAL
     Route: 048
     Dates: start: 20050801
  3. MULTIVITAMINS (ASCORBIC ACID, ERGOCALCIFEROL, FOLIC ACID, NICOTINAMIDE [Concomitant]

REACTIONS (4)
  - BLOOD PRESSURE INCREASED [None]
  - DEPRESSION [None]
  - SOCIAL PHOBIA [None]
  - TINNITUS [None]
